FAERS Safety Report 5711903-X (Version None)
Quarter: 2008Q2

REPORT INFORMATION
  Report Type: 
  Country: None (occurrence: None)
  Receive Date: 20080421
  Receipt Date: 20080328
  Transmission Date: 20081010
  Serious: Yes (Death)
  Sender: FDA-Public Use
  Company Number: US-GILEAD-2008-0015508

PATIENT
  Age: 6 Year
  Sex: Male

DRUGS (10)
  1. CIDOFOVIR [Suspect]
     Indication: BURKITT'S LYMPHOMA
  2. DOXORUBICIN HCL [Suspect]
     Indication: BURKITT'S LYMPHOMA
  3. CARBOPLATIN [Suspect]
  4. VINCRISTINE [Suspect]
     Indication: BURKITT'S LYMPHOMA
  5. IFOSAMIDE [Suspect]
     Indication: BURKITT'S LYMPHOMA
  6. ETOPOSIDE [Suspect]
     Indication: BURKITT'S LYMPHOMA
  7. CYCLOPHOSPHAMIDE [Suspect]
     Indication: BURKITT'S LYMPHOMA
  8. METHOTREXATE [Suspect]
     Indication: BURKITT'S LYMPHOMA
  9. RITUXIMAB [Suspect]
     Indication: BURKITT'S LYMPHOMA
  10. PREDNISONE [Suspect]
     Indication: BURKITT'S LYMPHOMA

REACTIONS (1)
  - ENCEPHALOPATHY [None]
